FAERS Safety Report 18557084 (Version 1)
Quarter: 2020Q4

REPORT INFORMATION
  Report Type: Spontaneous
  Country: RU (occurrence: RU)
  Receive Date: 20201129
  Receipt Date: 20201129
  Transmission Date: 20210114
  Serious: Yes (Other)
  Sender: FDA-Public Use
  Company Number: RU-NOVOPROD-769133

PATIENT
  Age: 67 Year
  Sex: Female
  Weight: 84 kg

DRUGS (1)
  1. LEVEMIR [Suspect]
     Active Substance: INSULIN DETEMIR
     Indication: DIABETES MELLITUS
     Dosage: 12 IU, QD
     Route: 058
     Dates: start: 201201, end: 201202

REACTIONS (1)
  - Dermatitis allergic [Not Recovered/Not Resolved]
